FAERS Safety Report 17809798 (Version 4)
Quarter: 2020Q2

REPORT INFORMATION
  Report Type: Spontaneous
  Country: US (occurrence: US)
  Receive Date: 20200521
  Receipt Date: 20200629
  Transmission Date: 20200714
  Serious: Yes (Other)
  Sender: FDA-Public Use
  Company Number: NVSC2020US137949

PATIENT
  Sex: Male

DRUGS (1)
  1. ADAKVEO [Suspect]
     Active Substance: CRIZANLIZUMAB-TMCA
     Indication: SICKLE CELL ANAEMIA WITH CRISIS
     Dosage: 5 MG, OTHER (WEEK 0 AND 2, THEN EVERY 4 WEEKS)
     Route: 042

REACTIONS (2)
  - Sickle cell anaemia with crisis [Not Recovered/Not Resolved]
  - Condition aggravated [Not Recovered/Not Resolved]
